FAERS Safety Report 6470212-4 (Version None)
Quarter: 2009Q4

REPORT INFORMATION
  Report Type: 
  Country: None (occurrence: None)
  Receive Date: 20091203
  Receipt Date: 20080326
  Transmission Date: 20100525
  Serious: Yes (Hospitalization)
  Sender: FDA-Public Use
  Company Number: JP-ELI_LILLY_AND_COMPANY-JP200712004328

PATIENT
  Sex: Male
  Weight: 62 kg

DRUGS (4)
  1. GEMZAR [Suspect]
     Indication: GALLBLADDER CANCER NON-RESECTABLE
     Dosage: 1600 MG, OTHER
     Route: 042
     Dates: start: 20061121
  2. GEMZAR [Suspect]
     Dosage: 1200 MG, OTHER
     Route: 042
     Dates: start: 20061225
  3. GEMZAR [Suspect]
     Dosage: 900 MG, OTHER
     Route: 042
     Dates: end: 20080122
  4. URSO 250 [Concomitant]
     Indication: PROPHYLAXIS
     Dosage: 600 MG, DAILY (1/D)
     Route: 048
     Dates: start: 20061101

REACTIONS (2)
  - LIVER ABSCESS [None]
  - NEUTROPHIL COUNT DECREASED [None]
